FAERS Safety Report 6594122-7 (Version None)
Quarter: 2010Q1

REPORT INFORMATION
  Report Type: 
  Country: None (occurrence: None)
  Receive Date: 20100222
  Receipt Date: 20100210
  Transmission Date: 20100710
  Serious: Yes (Other)
  Sender: FDA-Public Use
  Company Number: JP-PFIZER INC-2010014126

PATIENT
  Age: 76 Year
  Sex: Female

DRUGS (1)
  1. VFEND [Suspect]
     Indication: ORAL CANDIDIASIS
     Dosage: 200 MG, 2X/DAY
     Route: 048
     Dates: start: 20091211, end: 20091212

REACTIONS (4)
  - DECREASED APPETITE [None]
  - DYSGEUSIA [None]
  - ORAL DISCOMFORT [None]
  - VISUAL IMPAIRMENT [None]
